FAERS Safety Report 6180482-8 (Version None)
Quarter: 2009Q2

REPORT INFORMATION
  Report Type: 
  Country: None (occurrence: None)
  Receive Date: 20090504
  Receipt Date: 20090504
  Transmission Date: 20091009
  Serious: Yes (Life-Threatening, Hospitalization)
  Sender: FDA-Public Use
  Company Number: None

PATIENT
  Age: 62 Year
  Sex: Female
  Weight: 61.2356 kg

DRUGS (1)
  1. ANTISEPTIC MOUTH CLEANSER RITE-AID [Suspect]
     Indication: DENTAL CARE
     Dosage: AS NEEDED TO CLEANSE
     Dates: start: 20080930, end: 20080930

REACTIONS (8)
  - BODY TEMPERATURE INCREASED [None]
  - CAUSTIC INJURY [None]
  - CELLULITIS [None]
  - MALAISE [None]
  - ORAL DISCOMFORT [None]
  - PAIN [None]
  - STOMATITIS [None]
  - SWELLING [None]
